FAERS Safety Report 7043907-1 (Version None)
Quarter: 2010Q4

REPORT INFORMATION
  Report Type: 
  Country: None (occurrence: None)
  Receive Date: 20101012
  Receipt Date: 20101012
  Transmission Date: 20110411
  Serious: Yes (Life-Threatening)
  Sender: FDA-Public Use
  Company Number: None

PATIENT
  Age: 71 Year
  Sex: Female
  Weight: 76.5 kg

DRUGS (1)
  1. FERAHEME [Suspect]
     Indication: ANAEMIA
     Dosage: 510MG X1 DOSE IV BOLUS, {1 MINUTE
     Route: 040
     Dates: start: 20101007, end: 20101007

REACTIONS (4)
  - BLOOD PRESSURE INCREASED [None]
  - EYE ROLLING [None]
  - INCORRECT DRUG ADMINISTRATION RATE [None]
  - NAUSEA [None]
